FAERS Safety Report 21577622 (Version 3)
Quarter: 2022Q4

REPORT INFORMATION
  Report Type: Report from Study
  Country: US (occurrence: US)
  Receive Date: 20221110
  Receipt Date: 20221212
  Transmission Date: 20230113
  Serious: Yes (Hospitalization)
  Sender: FDA-Public Use
  Company Number: US-JNJFOC-20221103340

PATIENT
  Age: 66 Year
  Sex: Male
  Weight: 108.7 kg

DRUGS (11)
  1. TECLISTAMAB [Suspect]
     Active Substance: TECLISTAMAB
     Indication: Plasma cell myeloma
     Dosage: ADDITIONAL BATCH NUMBER 864-1548, AAYJ-10347
     Route: 058
     Dates: start: 20220830, end: 20220901
  2. TECLISTAMAB [Suspect]
     Active Substance: TECLISTAMAB
     Dosage: ADDITIONAL BATCH NUMBER 207-7879, AATM-10013
     Route: 058
     Dates: start: 20220906, end: 20221018
  3. DARATUMUMAB [Suspect]
     Active Substance: DARATUMUMAB
     Indication: Plasma cell myeloma
     Dosage: 15 ML, ADDITIONAL BATCH NUMBER AARO-10013
     Route: 058
     Dates: start: 20220829, end: 20221018
  4. FAMOTIDINE [Concomitant]
     Active Substance: FAMOTIDINE
     Indication: Diverticulum
     Route: 048
     Dates: start: 20191011
  5. ASPIRIN [Concomitant]
     Active Substance: ASPIRIN
     Indication: Thrombosis prophylaxis
     Route: 048
     Dates: start: 20210416
  6. MOXIFLOXACIN [Concomitant]
     Active Substance: MOXIFLOXACIN
     Indication: Antifungal prophylaxis
     Route: 048
     Dates: start: 20220829
  7. ACYCLOVIR [Concomitant]
     Active Substance: ACYCLOVIR
     Indication: Antiviral prophylaxis
     Route: 048
     Dates: start: 20220822
  8. FLUCONAZOLE [Concomitant]
     Active Substance: FLUCONAZOLE
     Indication: Antifungal prophylaxis
     Route: 048
     Dates: start: 20220829
  9. K PHOS NEUTRAL [Concomitant]
     Active Substance: POTASSIUM PHOSPHATE, MONOBASIC\SODIUM PHOSPHATE, DIBASIC, ANHYDROUS\SODIUM PHOSPHATE, MONOBASIC, MON
     Indication: Hypophosphataemia
     Route: 048
     Dates: start: 20221029, end: 20221029
  10. VITAMINS NOS [Concomitant]
     Active Substance: VITAMINS
     Indication: Prophylaxis
     Route: 048
     Dates: start: 20220927
  11. XGEVA [Concomitant]
     Active Substance: DENOSUMAB
     Indication: Osteoporosis prophylaxis
     Route: 058
     Dates: start: 20220927

REACTIONS (1)
  - Febrile neutropenia [Recovered/Resolved]

NARRATIVE: CASE EVENT DATE: 20221027
